FAERS Safety Report 24646515 (Version 4)
Quarter: 2024Q4

REPORT INFORMATION
  Report Type: Report from Study
  Country: US (occurrence: US)
  Receive Date: 20241121
  Receipt Date: 20241126
  Transmission Date: 20250115
  Serious: No
  Sender: NOVARTIS
  Company Number: US-002147023-NVSC2024US223675

PATIENT
  Sex: Male

DRUGS (1)
  1. COSENTYX [Suspect]
     Active Substance: SECUKINUMAB
     Indication: Product used for unknown indication
     Dosage: UNK UNK, QW
     Route: 065

REACTIONS (4)
  - Device leakage [Recovered/Resolved]
  - Accidental exposure to product [Recovered/Resolved]
  - Needle issue [Recovered/Resolved]
  - Product administration error [Unknown]
